FAERS Safety Report 26135961 (Version 1)
Quarter: 2025Q4

REPORT INFORMATION
  Report Type: Spontaneous
  Country: US (occurrence: None)
  Receive Date: 20251209
  Receipt Date: 20251209
  Transmission Date: 20260118
  Serious: Yes (Hospitalization)
  Sender: FDA-CTU
  Company Number: None

PATIENT
  Sex: Female

DRUGS (7)
  1. XOLAIR [Suspect]
     Active Substance: OMALIZUMAB
     Indication: Asthma
     Dosage: FREQUENCY : MONTHLY;
     Route: 058
     Dates: start: 20250521
  2. AMILORIDE TAB5MG [Concomitant]
  3. OSCAL 500/ TAB 200 D-3 [Concomitant]
  4. VITAMIN B-1 TAB 100MG [Concomitant]
  5. VITAMIN C TAB 500MG [Concomitant]
  6. VITAMIN D-1000 [Concomitant]
  7. ZINC SULFATE TAB 220MG [Concomitant]

REACTIONS (5)
  - Pneumonia [None]
  - Bronchitis [None]
  - Cardiac failure [None]
  - Disease complication [None]
  - Oxygen saturation decreased [None]
